FAERS Safety Report 8112177-5 (Version None)
Quarter: 2012Q1

REPORT INFORMATION
  Report Type: 
  Country: None (occurrence: None)
  Receive Date: 20120203
  Receipt Date: 20120131
  Transmission Date: 20120608
  Serious: Yes (Hospitalization)
  Sender: FDA-Public Use
  Company Number: US-PFIZER INC-2012026652

PATIENT
  Sex: Female
  Weight: 86.168 kg

DRUGS (1)
  1. IBUPROFEN (ADVIL) [Suspect]
     Indication: ARTHRALGIA
     Dosage: UNK, AS NEEDED
     Route: 048
     Dates: start: 20111230, end: 20120118

REACTIONS (1)
  - BLOOD PRESSURE INCREASED [None]
